FAERS Safety Report 18668410 (Version 1)
Quarter: 2020Q4

REPORT INFORMATION
  Report Type: Other
  Country: DE (occurrence: DE)
  Receive Date: 20201228
  Receipt Date: 20201228
  Transmission Date: 20210114
  Serious: Yes (Hospitalization)
  Sender: FDA-Public Use
  Company Number: DE-EMCURE PHARMACEUTICALS LTD-2020-EPL-002283

PATIENT
  Age: 35 Year
  Sex: Female

DRUGS (4)
  1. RIZATRIPTAN. [Suspect]
     Active Substance: RIZATRIPTAN
     Dosage: 3 SINGLE DOSES
     Dates: start: 20201112
  2. TOPIRAMATE. [Concomitant]
     Active Substance: TOPIRAMATE
     Dosage: 25 MILLIGRAM,BID, 1-0-1-0
  3. PREDNISOLONE. [Concomitant]
     Active Substance: PREDNISOLONE
     Dosage: 25 MILLIGRAM, 0.25-0-0-0
  4. TENOFOVIR [Concomitant]
     Active Substance: TENOFOVIR
     Dosage: 245 MILLIGRAM, QD, 1-0-0-0

REACTIONS (3)
  - Headache [Unknown]
  - Overdose [Unknown]
  - Product administration error [Unknown]
